FAERS Safety Report 20250346 (Version 1)
Quarter: 2021Q4

REPORT INFORMATION
  Report Type: Spontaneous
  Country: US (occurrence: US)
  Receive Date: 20211229
  Receipt Date: 20211229
  Transmission Date: 20220303
  Serious: No
  Sender: FDA-Public Use
  Company Number: US-KARYOPHARM-2021KPT001486

PATIENT

DRUGS (32)
  1. XPOVIO [Suspect]
     Active Substance: SELINEXOR
     Indication: Plasma cell myeloma
     Dosage: 80 MG, WEEKLY
     Route: 048
     Dates: start: 20211109, end: 20211123
  2. XPOVIO [Suspect]
     Active Substance: SELINEXOR
     Dosage: 80 MG, WEEKLY
     Route: 048
     Dates: start: 2021
  3. ACYCLOVIR [Concomitant]
     Active Substance: ACYCLOVIR
  4. ALBUTEROL SULFATE [Concomitant]
     Active Substance: ALBUTEROL SULFATE
  5. CHLORHEXIDINE GLUCONATE [Concomitant]
     Active Substance: CHLORHEXIDINE GLUCONATE
  6. BETAMETHASONE CLOTRIMAZOLE [Concomitant]
     Active Substance: BETAMETHASONE DIPROPIONATE\CLOTRIMAZOLE
  7. COLCHICINE [Concomitant]
     Active Substance: COLCHICINE
     Route: 048
  8. CYCLOBENZAPRINE HYDROCHLORIDE [Concomitant]
     Active Substance: CYCLOBENZAPRINE HYDROCHLORIDE
  9. DEMEROL [Concomitant]
     Active Substance: MEPERIDINE HYDROCHLORIDE
  10. DEXAMETHASONE [Concomitant]
     Active Substance: DEXAMETHASONE
  11. FENTANYL [Concomitant]
     Active Substance: FENTANYL
  12. GLIPIZIDE [Concomitant]
     Active Substance: GLIPIZIDE
  13. HUMULIN R [Concomitant]
     Active Substance: INSULIN HUMAN
  14. LASIX [Concomitant]
     Active Substance: FUROSEMIDE
  15. LEVEMIR [Concomitant]
     Active Substance: INSULIN DETEMIR
  16. LYRICA [Concomitant]
     Active Substance: PREGABALIN
     Route: 048
  17. MONTELUKAST [Concomitant]
     Active Substance: MONTELUKAST SODIUM
  18. MORPHINE [Concomitant]
     Active Substance: MORPHINE
  19. OMEPRAZOLE [Concomitant]
     Active Substance: OMEPRAZOLE
  20. POTASSIUM CHLORIDE [Concomitant]
     Active Substance: POTASSIUM CHLORIDE
  21. PROCHLORPERAZINE [Concomitant]
     Active Substance: PROCHLORPERAZINE
  22. URSODIOL [Concomitant]
     Active Substance: URSODIOL
  23. XARELTO [Concomitant]
     Active Substance: RIVAROXABAN
  24. CARFILZOMIB [Concomitant]
     Active Substance: CARFILZOMIB
  25. GRANISETRON [Concomitant]
     Active Substance: GRANISETRON
     Route: 042
  26. FAMOTIDINE [Concomitant]
     Active Substance: FAMOTIDINE
  27. HYDROCORTISONE [Concomitant]
     Active Substance: HYDROCORTISONE
  28. METHYLPREDNISOLONE [Concomitant]
     Active Substance: METHYLPREDNISOLONE
  29. ZOLEDRONIC ACID [Concomitant]
     Active Substance: ZOLEDRONIC ACID
  30. KAOPECTATE [KAOLIN] [Concomitant]
  31. POMALYST [Concomitant]
     Active Substance: POMALIDOMIDE
  32. EPINEPHRINE [Concomitant]
     Active Substance: EPINEPHRINE

REACTIONS (2)
  - Diarrhoea [Not Recovered/Not Resolved]
  - Fatigue [Unknown]

NARRATIVE: CASE EVENT DATE: 20211117
